FAERS Safety Report 12689210 (Version 1)
Quarter: 2016Q3

REPORT INFORMATION
  Report Type: Spontaneous
  Country: AU (occurrence: AU)
  Receive Date: 20160826
  Receipt Date: 20160826
  Transmission Date: 20161109
  Serious: Yes (Hospitalization)
  Sender: FDA-Public Use
  Company Number: AU-AMGEN-AUSSP2016109136

PATIENT
  Age: 74 Year
  Sex: Male

DRUGS (4)
  1. METHOTREXATE. [Concomitant]
     Active Substance: METHOTREXATE
     Route: 065
  2. TRITACE [Concomitant]
     Active Substance: RAMIPRIL
     Route: 065
  3. MICARDIS [Concomitant]
     Active Substance: TELMISARTAN
  4. PROLIA [Suspect]
     Active Substance: DENOSUMAB
     Indication: PRODUCT USED FOR UNKNOWN INDICATION
     Dosage: 60 MG, UNK
     Route: 058
     Dates: start: 201505

REACTIONS (5)
  - Blood potassium decreased [Unknown]
  - Hypocalcaemia [Unknown]
  - Productive cough [Unknown]
  - Blood magnesium decreased [Unknown]
  - Dyspnoea [Unknown]

NARRATIVE: CASE EVENT DATE: 20160701
